FAERS Safety Report 18879244 (Version 2)
Quarter: 2021Q1

REPORT INFORMATION
  Report Type: Spontaneous
  Country: MG (occurrence: MG)
  Receive Date: 20210211
  Receipt Date: 20210227
  Transmission Date: 20210420
  Serious: Yes (Hospitalization, Disabling, Other)
  Sender: FDA-Public Use
  Company Number: MG-STRIDES ARCOLAB LIMITED-2021SP001688

PATIENT
  Age: 7 Year
  Sex: Male
  Weight: 40 kg

DRUGS (2)
  1. DICLOFENAC [Suspect]
     Active Substance: DICLOFENAC
     Indication: POST PROCEDURAL COMPLICATION
     Dosage: UNK,INJECTION TO THE VENTROMEDIAL REGION OF HIS RIGHT THIGH
     Route: 030
     Dates: start: 20180915
  2. BENZATHINE PENICILLIN [Suspect]
     Active Substance: PENICILLIN G BENZATHINE
     Indication: POST PROCEDURAL COMPLICATION
     Dosage: UNK, TO THE VENTROMEDIAL REGION OF HIS RIGHT THIGH
     Route: 030
     Dates: start: 20180915

REACTIONS (12)
  - Product preparation error [Unknown]
  - Medication error [Unknown]
  - Motor dysfunction [Not Recovered/Not Resolved]
  - Hypoaesthesia [Unknown]
  - Cyanosis [Recovered/Resolved]
  - Dermatitis [Recovered/Resolved]
  - Paralysis [Not Recovered/Not Resolved]
  - Peripheral ischaemia [Recovered/Resolved]
  - Compartment syndrome [Recovered/Resolved]
  - Intentional product misuse [Unknown]
  - Incorrect route of product administration [Unknown]
  - Off label use [Unknown]

NARRATIVE: CASE EVENT DATE: 20180915
